FAERS Safety Report 10994317 (Version 5)
Quarter: 2016Q3

REPORT INFORMATION
  Report Type: Spontaneous
  Country: US (occurrence: US)
  Receive Date: 20150407
  Receipt Date: 20160831
  Transmission Date: 20161109
  Serious: No
  Sender: FDA-Public Use
  Company Number: US-PFIZER INC-2015114900

PATIENT
  Age: 45 Year
  Sex: Female

DRUGS (12)
  1. PERCOCET [Concomitant]
     Active Substance: ACETAMINOPHEN\OXYCODONE HYDROCHLORIDE
     Dosage: UNK
  2. VITAMIN D3 [Concomitant]
     Active Substance: CHOLECALCIFEROL
     Dosage: UNK
  3. IBRANCE [Suspect]
     Active Substance: PALBOCICLIB
     Dosage: 100 MG, CYCLIC (1 CAPSULE DAILY FOR 21 DAYS AND 1 WEEK OFF)
     Route: 048
  4. XGEVA [Concomitant]
     Active Substance: DENOSUMAB
     Dosage: UNK
  5. FASLODEX [Concomitant]
     Active Substance: FULVESTRANT
     Dosage: UNK
  6. IBRANCE [Suspect]
     Active Substance: PALBOCICLIB
     Indication: BREAST CANCER
     Dosage: 125 MG, CYCLIC, (EVERY DAY FOR 3 WEEKS, THEN 1 WEEK OFF)
     Route: 048
     Dates: start: 20150225
  7. XANAX [Concomitant]
     Active Substance: ALPRAZOLAM
     Dosage: UNK
  8. OXYCONTIN [Concomitant]
     Active Substance: OXYCODONE HYDROCHLORIDE
     Dosage: UNK
  9. ANASTROZOLE. [Concomitant]
     Active Substance: ANASTROZOLE
     Dosage: UNK
  10. TRAMADOL HCL [Concomitant]
     Active Substance: TRAMADOL HYDROCHLORIDE
     Dosage: UNK
  11. FLEXERIL [Concomitant]
     Active Substance: CYCLOBENZAPRINE HYDROCHLORIDE
     Dosage: UNK
  12. LETROZOLE. [Concomitant]
     Active Substance: LETROZOLE
     Dosage: UNK

REACTIONS (7)
  - Mucosal inflammation [Unknown]
  - Nasal discomfort [Unknown]
  - Red blood cell count decreased [Unknown]
  - Tumour marker increased [Unknown]
  - Weight increased [Unknown]
  - Weight decreased [Unknown]
  - Rash [Unknown]
